FAERS Safety Report 15769927 (Version 1)
Quarter: 2018Q4

REPORT INFORMATION
  Report Type: Spontaneous
  Country: US (occurrence: US)
  Receive Date: 20181227
  Receipt Date: 20181227
  Transmission Date: 20190205
  Serious: Yes (Other)
  Sender: FDA-Public Use
  Company Number: None

PATIENT
  Age: 56 Year
  Sex: Female
  Weight: 53.55 kg

DRUGS (11)
  1. CANNABIS [Concomitant]
     Active Substance: CANNABIS SATIVA SUBSP. INDICA TOP
  2. LETROZOLE. [Concomitant]
     Active Substance: LETROZOLE
  3. VITAMIN D [Concomitant]
     Active Substance: CHOLECALCIFEROL
  4. LASIX [Concomitant]
     Active Substance: FUROSEMIDE
  5. ASHWAGANDHA [Concomitant]
     Active Substance: HERBALS
  6. MAGNESIUM [Concomitant]
     Active Substance: MAGNESIUM
  7. MEKINIST [Suspect]
     Active Substance: TRAMETINIB DIMETHYL SULFOXIDE
     Indication: OVARIAN CANCER
     Route: 048
     Dates: start: 20180918
  8. NORCO [Concomitant]
     Active Substance: ACETAMINOPHEN\HYDROCODONE BITARTRATE
  9. LEMON BALM [Concomitant]
  10. SAPHRIS [Concomitant]
     Active Substance: ASENAPINE MALEATE
  11. SPIRONOLACTONE. [Concomitant]
     Active Substance: SPIRONOLACTONE

REACTIONS (2)
  - Haematuria [None]
  - Renal pain [None]
